FAERS Safety Report 23447581 (Version 1)
Quarter: 2024Q1

REPORT INFORMATION
  Report Type: Spontaneous
  Country: US (occurrence: None)
  Receive Date: 20240126
  Receipt Date: 20240126
  Transmission Date: 20240410
  Serious: Yes (Life-Threatening, Other)
  Sender: FDA-Public Use
  Company Number: None

PATIENT

DRUGS (1)
  1. NITROGLYCERIN [Suspect]
     Active Substance: NITROGLYCERIN
     Dates: start: 20231218, end: 20231218

REACTIONS (4)
  - Catheterisation cardiac [None]
  - Chest pain [None]
  - Device failure [None]
  - Device power source issue [None]

NARRATIVE: CASE EVENT DATE: 20231218
